FAERS Safety Report 5086903-6 (Version None)
Quarter: 2006Q3

REPORT INFORMATION
  Report Type: 
  Country: None (occurrence: None)
  Receive Date: 20060818
  Receipt Date: 20060803
  Transmission Date: 20061208
  Serious: Yes (Death, Other)
  Sender: FDA-Public Use
  Company Number: 2006-DE-04086GD

PATIENT
  Age: 67 Year
  Sex: Male

DRUGS (3)
  1. PREDNISONE TAB [Suspect]
     Indication: ENCEPHALITIS
     Dosage: PO
     Route: 048
  2. PREDNISONE TAB [Suspect]
     Indication: NERVOUS SYSTEM DISORDER
     Dosage: PO
     Route: 048
  3. METHYLPREDNISOLONE [Suspect]
     Indication: ENCEPHALITIS
     Dosage: 1 G, IV
     Route: 042

REACTIONS (14)
  - AMNESIA [None]
  - APHASIA [None]
  - CONVULSION [None]
  - COORDINATION ABNORMAL [None]
  - DIPLOPIA [None]
  - ENCEPHALITIS HERPES [None]
  - FACIAL PARESIS [None]
  - GAZE PALSY [None]
  - MUSCULAR WEAKNESS [None]
  - PARANEOPLASTIC SYNDROME [None]
  - PNEUMONIA ASPIRATION [None]
  - SACCADIC EYE MOVEMENT [None]
  - THERAPY NON-RESPONDER [None]
  - URINARY INCONTINENCE [None]
